FAERS Safety Report 15277884 (Version 1)
Quarter: 2018Q4

REPORT INFORMATION
  Report Type: Spontaneous
  Country: DE (occurrence: DE)
  Receive Date: 20180814
  Receipt Date: 20180814
  Transmission Date: 20190204
  Serious: Yes (Death, Congenital Anomaly)
  Sender: FDA-Public Use
  Company Number: DE-TEVA-2018-DE-939509

PATIENT

DRUGS (1)
  1. VALPROIC ACID, SODIUM VALPROATE [Suspect]
     Active Substance: VALPROIC ACID
     Indication: PATERNAL EXPOSURE TIMING UNSPECIFIED

REACTIONS (3)
  - Umbilical cord thrombosis [Fatal]
  - Paternal exposure timing unspecified [Fatal]
  - Congenital anomaly [Fatal]
